FAERS Safety Report 20930298 (Version 1)
Quarter: 2022Q2

REPORT INFORMATION
  Report Type: Spontaneous
  Country: US (occurrence: US)
  Receive Date: 20220608
  Receipt Date: 20220608
  Transmission Date: 20220720
  Serious: Yes (Hospitalization)
  Sender: FDA-Public Use
  Company Number: US-BRISTOL-MYERS SQUIBB COMPANY-2022-048438

PATIENT
  Age: 76 Year
  Sex: Male

DRUGS (1)
  1. LENALIDOMIDE [Suspect]
     Active Substance: LENALIDOMIDE
     Indication: Bone cancer
     Dosage: DOSE : 1 TABLET;     FREQ : DAILY FOR 21 DAYS, THEN OFF (^ON VACATION^) FOR 7 DAYS
     Route: 048
     Dates: start: 2021

REACTIONS (2)
  - Heart rate irregular [Unknown]
  - Intentional product use issue [Unknown]

NARRATIVE: CASE EVENT DATE: 20220522
